FAERS Safety Report 6704181-6 (Version None)
Quarter: 2010Q2

REPORT INFORMATION
  Report Type: 
  Country: None (occurrence: None)
  Receive Date: 20100423
  Receipt Date: 20100222
  Transmission Date: 20101027
  Serious: No
  Sender: FDA-Public Use
  Company Number: ALL1-2010-01314

PATIENT
  Age: 30 Year
  Sex: Male

DRUGS (1)
  1. VYVANSE [Suspect]
     Indication: DRUG USE FOR UNKNOWN INDICATION
     Dosage: 140 MG, 1X/DAY:QD, ORAL, 210 MG, 1X/DAY: (PATIENT INCREASED DOSE), ORAL
     Route: 048

REACTIONS (6)
  - COMPULSIONS [None]
  - DRUG ABUSE [None]
  - INSOMNIA [None]
  - INTENTIONAL OVERDOSE [None]
  - LIBIDO INCREASED [None]
  - OVERDOSE [None]
